FAERS Safety Report 7664700-2 (Version None)
Quarter: 2011Q3

REPORT INFORMATION
  Report Type: 
  Country: None (occurrence: None)
  Receive Date: 20110806
  Receipt Date: 20110125
  Transmission Date: 20111222
  Serious: No
  Sender: FDA-Public Use
  Company Number: US-ABBOTT-11P-163-0700282-00

PATIENT
  Sex: Male

DRUGS (5)
  1. NIASPAN [Suspect]
     Indication: BLOOD CHOLESTEROL INCREASED
     Dosage: AT BEDTIME
     Route: 048
     Dates: start: 20110120
  2. UNKNOWN THYROID HORMONE REPLACEMENT MEDICATION [Concomitant]
     Indication: PRODUCT USED FOR UNKNOWN INDICATION
  3. UNSPECIFIED OPIATE [Concomitant]
     Indication: NECK PAIN
  4. TOPROL-XL [Concomitant]
     Indication: PRODUCT USED FOR UNKNOWN INDICATION
  5. UNSPECIFIED OPIATE [Concomitant]
     Indication: FACIAL PAIN

REACTIONS (1)
  - FLUSHING [None]
